FAERS Safety Report 18755454 (Version 2)
Quarter: 2021Q1

REPORT INFORMATION
  Report Type: Spontaneous
  Country: US (occurrence: US)
  Receive Date: 20210119
  Receipt Date: 20210210
  Transmission Date: 20210419
  Serious: No
  Sender: FDA-Public Use
  Company Number: US-GRANULES-US-2021GRASPO00007

PATIENT
  Age: 66 Year
  Sex: Female

DRUGS (1)
  1. IBUPROFEN. [Suspect]
     Active Substance: IBUPROFEN
     Indication: PRODUCT USED FOR UNKNOWN INDICATION
     Route: 048
     Dates: start: 20210107, end: 20210107

REACTIONS (5)
  - Product odour abnormal [Unknown]
  - Abdominal pain upper [Unknown]
  - Abdominal distension [Unknown]
  - Illness [Unknown]
  - Nausea [Unknown]
